FAERS Safety Report 9642867 (Version 2)
Quarter: 2013Q4

REPORT INFORMATION
  Report Type: Report from Study
  Country: US (occurrence: US)
  Receive Date: 20131024
  Receipt Date: 20131122
  Transmission Date: 20140711
  Serious: Yes (Death, Hospitalization)
  Sender: FDA-Public Use
  Company Number: US-ASTELLAS-2013US010961

PATIENT
  Age: 77 Year
  Sex: Male

DRUGS (12)
  1. ERLOTINIB TABLET [Suspect]
     Indication: LUNG NEOPLASM MALIGNANT
     Dosage: 150 MG, UID/QD
     Route: 048
     Dates: start: 20130928, end: 20131005
  2. ERLOTINIB TABLET [Suspect]
     Indication: METASTASES TO GASTROINTESTINAL TRACT
  3. LASIX                              /00032601/ [Concomitant]
     Indication: ASCITES
     Dosage: 20 MG, UID/QD
     Route: 048
     Dates: start: 20130909
  4. LASIX                              /00032601/ [Concomitant]
     Indication: OEDEMA
  5. SPIRONOLACTONE [Concomitant]
     Indication: PRODUCT USED FOR UNKNOWN INDICATION
     Dosage: UNK
     Route: 065
  6. DECADRON                           /00016001/ [Concomitant]
     Indication: PRODUCT USED FOR UNKNOWN INDICATION
     Dosage: UNK
     Route: 065
  7. ATIVAN [Concomitant]
     Indication: PRODUCT USED FOR UNKNOWN INDICATION
     Dosage: UNK
     Route: 065
  8. COMPAZINE SPANSULE [Concomitant]
     Indication: PRODUCT USED FOR UNKNOWN INDICATION
     Dosage: UNK
     Route: 065
  9. PANTOPRAZOLE [Concomitant]
     Indication: PRODUCT USED FOR UNKNOWN INDICATION
     Dosage: UNK
     Route: 065
  10. REMERON [Concomitant]
     Indication: PRODUCT USED FOR UNKNOWN INDICATION
     Dosage: 7.5 MG, AT NIGHT
     Route: 048
     Dates: start: 20130819
  11. ALDACTONE                          /00006201/ [Concomitant]
     Indication: ASCITES
     Dosage: 25 MG, UID/QD
     Route: 048
     Dates: start: 20130909
  12. ALDACTONE                          /00006201/ [Concomitant]
     Indication: OEDEMA

REACTIONS (3)
  - Sepsis [Fatal]
  - Shock [Fatal]
  - Asthenia [Unknown]
